FAERS Safety Report 6202821-1 (Version None)
Quarter: 2009Q2

REPORT INFORMATION
  Report Type: 
  Country: None (occurrence: None)
  Receive Date: 20090526
  Receipt Date: 20090516
  Transmission Date: 20091009
  Serious: Yes (Other)
  Sender: FDA-Public Use
  Company Number: US-JNJCH-2009013967

PATIENT
  Sex: Male

DRUGS (1)
  1. COOL MINT LISTERINE [Suspect]
     Indication: DRUG USE FOR UNKNOWN INDICATION
     Dosage: TEXT:UNSPECIFIED
     Route: 048

REACTIONS (3)
  - GINGIVAL SWELLING [None]
  - HYPOAESTHESIA ORAL [None]
  - LIP SWELLING [None]
